FAERS Safety Report 8131509-5 (Version None)
Quarter: 2012Q1

REPORT INFORMATION
  Report Type: 
  Country: None (occurrence: None)
  Receive Date: 20120213
  Receipt Date: 20120206
  Transmission Date: 20120608
  Serious: Yes (Hospitalization, Other)
  Sender: FDA-Public Use
  Company Number: US-JNJFOC-20111203508

PATIENT
  Sex: Female

DRUGS (10)
  1. SYNTHROID [Suspect]
     Indication: GOITRE
     Route: 048
  2. DOXYLAMINE SUCCINATE [Suspect]
     Indication: PRODUCT USED FOR UNKNOWN INDICATION
     Route: 065
  3. SOMA [Suspect]
     Indication: PAIN
     Route: 048
  4. DURAGESIC-100 [Suspect]
     Indication: PAIN
     Route: 062
  5. EFFEXOR [Suspect]
     Indication: FIBROMYALGIA
     Route: 048
     Dates: start: 20020101, end: 20020801
  6. ATENOLOL [Suspect]
     Indication: HYPERTENSION
     Route: 065
  7. TOPAMAX [Suspect]
     Indication: MIGRAINE
     Route: 048
     Dates: start: 20020401
  8. PHENOBARBITAL TAB [Suspect]
     Indication: ECLAMPSIA
     Route: 065
  9. MACRODANTIN [Suspect]
     Indication: PRODUCT USED FOR UNKNOWN INDICATION
     Route: 048
  10. LORTAB [Suspect]
     Indication: PAIN
     Route: 065

REACTIONS (3)
  - PREMATURE LABOUR [None]
  - MATERNAL EXPOSURE DURING PREGNANCY [None]
  - ANXIETY [None]
